FAERS Safety Report 7378487-4 (Version None)
Quarter: 2011Q1

REPORT INFORMATION
  Report Type: 
  Country: None (occurrence: None)
  Receive Date: 20110328
  Receipt Date: 20110318
  Transmission Date: 20110831
  Serious: Yes (Hospitalization)
  Sender: FDA-Public Use
  Company Number: US-ELI_LILLY_AND_COMPANY-US201103006183

PATIENT
  Sex: Female

DRUGS (3)
  1. BYETTA [Suspect]
     Dosage: 5 UG, UNK
     Dates: start: 20110217
  2. LANTUS [Concomitant]
     Dosage: UNK
  3. NOVOLOG [Concomitant]
     Dosage: UNK

REACTIONS (6)
  - BLOOD GLUCOSE DECREASED [None]
  - OFF LABEL USE [None]
  - MYOCARDIAL INFARCTION [None]
  - FATIGUE [None]
  - DIABETES MELLITUS INADEQUATE CONTROL [None]
  - BLOOD PRESSURE INADEQUATELY CONTROLLED [None]
